FAERS Safety Report 21838137 (Version 1)
Quarter: 2023Q1

REPORT INFORMATION
  Report Type: Other
  Country: DE (occurrence: None)
  Receive Date: 20230109
  Receipt Date: 20230109
  Transmission Date: 20230418
  Serious: No
  Sender: FDA-Public Use
  Company Number: DE-ROCHE-3259119

PATIENT
  Age: 53 Year
  Sex: Female
  Weight: 65 kg

DRUGS (23)
  1. OCRELIZUMAB [Suspect]
     Active Substance: OCRELIZUMAB
     Indication: Primary progressive multiple sclerosis
     Route: 042
     Dates: start: 20180614, end: 20180628
  2. OCRELIZUMAB [Suspect]
     Active Substance: OCRELIZUMAB
     Route: 042
     Dates: start: 20181214
  3. DALFAMPRIDINE [Concomitant]
     Active Substance: DALFAMPRIDINE
     Route: 048
     Dates: start: 20120202
  4. EBASTINE [Concomitant]
     Active Substance: EBASTINE
     Indication: Prophylaxis
     Route: 048
     Dates: start: 20180613, end: 20180615
  5. EBASTINE [Concomitant]
     Active Substance: EBASTINE
     Route: 048
     Dates: start: 20180627, end: 20180629
  6. EBASTINE [Concomitant]
     Active Substance: EBASTINE
     Route: 048
     Dates: start: 20181213, end: 20181215
  7. COTRIM [Concomitant]
     Active Substance: SULFAMETHOXAZOLE\TRIMETHOPRIM
     Indication: Urinary tract infection
     Route: 048
     Dates: start: 20180814, end: 20180816
  8. NITROXOLINE [Concomitant]
     Active Substance: NITROXOLINE
     Indication: Urinary tract infection
     Dosage: DEFINITION OF THE INTERVAL: AS REQUIRED
     Route: 048
     Dates: start: 20161212
  9. PREDNISOLONE [Concomitant]
     Active Substance: PREDNISOLONE
     Indication: Prophylaxis
     Route: 042
     Dates: start: 20181214, end: 20181214
  10. PREDNISOLONE [Concomitant]
     Active Substance: PREDNISOLONE
     Route: 042
     Dates: start: 20180628, end: 20180628
  11. NABIXIMOLS [Concomitant]
     Active Substance: NABIXIMOLS
     Indication: Muscle spasticity
     Route: 048
     Dates: start: 201903
  12. SPASMEX (GERMANY) [Concomitant]
     Indication: Bladder discomfort
     Route: 048
     Dates: start: 20161212
  13. CHOLECALCIFEROL [Concomitant]
     Active Substance: CHOLECALCIFEROL
     Indication: Vitamin supplementation
     Route: 048
     Dates: start: 20180607
  14. PFIZER-BIONTECH COVID-19 VACCINE [Concomitant]
     Active Substance: TOZINAMERAN
     Indication: COVID-19 prophylaxis
     Route: 030
     Dates: start: 20211110, end: 20211110
  15. RANITIDINE HYDROCHLORIDE [Concomitant]
     Active Substance: RANITIDINE HYDROCHLORIDE
     Indication: Prophylaxis
     Route: 048
     Dates: start: 20181213, end: 20181215
  16. RANITIDINE HYDROCHLORIDE [Concomitant]
     Active Substance: RANITIDINE HYDROCHLORIDE
     Route: 048
     Dates: start: 20180627, end: 20180629
  17. RANITIDINE HYDROCHLORIDE [Concomitant]
     Active Substance: RANITIDINE HYDROCHLORIDE
     Route: 048
     Dates: start: 20180613, end: 20180615
  18. TIZANIDINE HYDROCHLORIDE [Concomitant]
     Active Substance: TIZANIDINE HYDROCHLORIDE
     Indication: Muscle spasticity
     Dosage: DEFINITION OF THE INTERVAL: AS REQUIRED
     Route: 048
     Dates: start: 20220304
  19. BACLOFEN [Concomitant]
     Active Substance: BACLOFEN
     Indication: Muscle spasticity
     Route: 048
     Dates: start: 201905
  20. BACLOFEN [Concomitant]
     Active Substance: BACLOFEN
     Route: 048
  21. PREDNISOLONE [Concomitant]
     Active Substance: PREDNISOLONE
     Indication: Prophylaxis
     Route: 042
     Dates: start: 20180614, end: 20180614
  22. PFIZER-BIONTECH COVID-19 VACCINE [Concomitant]
     Active Substance: TOZINAMERAN
     Indication: COVID-19 prophylaxis
     Route: 030
     Dates: start: 20210917, end: 20210917
  23. METHYLPREDNISOLONE [Concomitant]
     Active Substance: METHYLPREDNISOLONE
     Indication: Uhthoff^s phenomenon
     Route: 042
     Dates: start: 20180814, end: 20180816

REACTIONS (1)
  - COVID-19 [Recovered/Resolved]

NARRATIVE: CASE EVENT DATE: 20221001
